FAERS Safety Report 23684183 (Version 3)
Quarter: 2024Q2

REPORT INFORMATION
  Report Type: Spontaneous
  Country: US (occurrence: US)
  Receive Date: 20240328
  Receipt Date: 20240603
  Transmission Date: 20240716
  Serious: No
  Sender: FDA-Public Use
  Company Number: US-FreseniusKabi-FK202405045

PATIENT
  Age: 65 Year
  Sex: Female
  Weight: 58.1 kg

DRUGS (4)
  1. EPINEPHRINE\LIDOCAINE HYDROCHLORIDE [Suspect]
     Active Substance: EPINEPHRINE\LIDOCAINE HYDROCHLORIDE
     Indication: Local anaesthesia
     Dosage: FORM OF ADMIN: INJECTION?ROUTE OF ADMIN: SUBCUTANEOUS(SC)
     Route: 058
     Dates: start: 20240313
  2. Efudex 5 percent cream [Concomitant]
     Indication: Product used for unknown indication
     Dosage: FORM OF ADMIN: CREAM
  3. Atrovent 21mcg nasal spray [Concomitant]
     Indication: Product used for unknown indication
     Dosage: FORM OF ADMIN: NASAL SPRAY
  4. LEVOTHYROXINE [Concomitant]
     Active Substance: LEVOTHYROXINE\LEVOTHYROXINE SODIUM
     Indication: Product used for unknown indication

REACTIONS (1)
  - Contusion [Recovered/Resolved]

NARRATIVE: CASE EVENT DATE: 20240313
